FAERS Safety Report 5005161-1 (Version None)
Quarter: 2006Q2

REPORT INFORMATION
  Report Type: 
  Country: None (occurrence: None)
  Receive Date: 20060512
  Receipt Date: 19950509
  Transmission Date: 20061013
  Serious: Yes (Death, Life-Threatening, Other)
  Sender: FDA-Public Use
  Company Number: 1199510711

PATIENT
  Age: 46 Year
  Sex: Male
  Weight: 61 kg

DRUGS (5)
  1. TRASYLOL [Suspect]
     Indication: OPERATIVE HAEMORRHAGE
     Dosage: INTRAVENOUS
     Route: 042
     Dates: start: 19950408
  2. DIGOXIN [Concomitant]
  3. LASIX [Concomitant]
  4. AMILORIDE [Concomitant]
  5. MONOCORD [Concomitant]

REACTIONS (6)
  - ACUTE RESPIRATORY DISTRESS SYNDROME [None]
  - ANAPHYLACTIC REACTION [None]
  - BLOOD PRESSURE DECREASED [None]
  - GENERAL PHYSICAL HEALTH DETERIORATION [None]
  - LOWER RESPIRATORY TRACT INFECTION [None]
  - POST PROCEDURAL HAEMORRHAGE [None]
